FAERS Safety Report 9117392 (Version 6)
Quarter: 2013Q4

REPORT INFORMATION
  Report Type: Spontaneous
  Country: BR (occurrence: BR)
  Receive Date: 20130225
  Receipt Date: 20131011
  Transmission Date: 20140711
  Serious: Yes (Other)
  Sender: FDA-Public Use
  Company Number: BR-BIOGENIDEC-2012BI031636

PATIENT
  Age: 35 Year
  Sex: Female
  Weight: 63 kg

DRUGS (7)
  1. AVONEX [Suspect]
     Indication: MULTIPLE SCLEROSIS
     Route: 030
     Dates: start: 20090619, end: 20120510
  2. DAMATER [Concomitant]
     Indication: PREGNANCY
     Route: 048
     Dates: start: 201206
  3. MECLIN [Concomitant]
     Indication: PREGNANCY
     Dates: start: 201206
  4. VOLTAREN [Concomitant]
     Indication: ANALGESIC THERAPY
  5. CERAZETTE [Concomitant]
  6. FOLIC ACID [Concomitant]
  7. VITAMIN C [Concomitant]
     Dates: start: 201211

REACTIONS (5)
  - Placental disorder [Unknown]
  - Abdominal pain lower [Unknown]
  - Poor quality sleep [Unknown]
  - Nausea [Unknown]
  - Fatigue [Unknown]
